FAERS Safety Report 5250497-2 (Version None)
Quarter: 2007Q1

REPORT INFORMATION
  Report Type: 
  Country: None (occurrence: None)
  Receive Date: 20070228
  Receipt Date: 20060510
  Transmission Date: 20070707
  Serious: Yes (Other)
  Sender: FDA-Public Use
  Company Number: US-GLAXOSMITHKLINE-A0603221A

PATIENT
  Age: 53 Year
  Sex: Male

DRUGS (2)
  1. LAMICTAL [Suspect]
     Indication: BIPOLAR II DISORDER
     Dosage: 25MG PER DAY
     Route: 048
     Dates: start: 20060308, end: 20060310
  2. LEXAPRO [Suspect]
     Indication: BIPOLAR II DISORDER
     Dosage: 10MG UNKNOWN
     Route: 048
     Dates: end: 20060308

REACTIONS (3)
  - ANXIETY [None]
  - MANIA [None]
  - SLEEP DISORDER [None]
